FAERS Safety Report 6471274-0 (Version None)
Quarter: 2009Q4

REPORT INFORMATION
  Report Type: 
  Country: None (occurrence: None)
  Receive Date: 20091203
  Receipt Date: 20080804
  Transmission Date: 20100525
  Serious: Yes (Other)
  Sender: FDA-Public Use
  Company Number: GB-ELI_LILLY_AND_COMPANY-GB200802003841

PATIENT
  Sex: Female
  Weight: 100.2 kg

DRUGS (6)
  1. BYETTA [Suspect]
     Indication: OBESITY
     Dosage: 5 UG, 2/D
     Route: 058
     Dates: start: 20080118, end: 20080121
  2. NOVORAPID [Concomitant]
     Dosage: UNK, 3/D
     Route: 065
  3. LEVEMIR [Concomitant]
     Dosage: UNK, AT NIGHT
     Route: 065
  4. GLIMEPIRIDE [Concomitant]
     Dosage: 6 MG, UNKNOWN
     Route: 065
  5. GLUCOPHAGE [Concomitant]
     Dosage: 2 X 500 EACH MORNING, 500 AS NEEDED
     Route: 065
  6. PRAVASTATIN [Concomitant]
     Indication: HYPERLIPIDAEMIA
     Dosage: 20 MG, UNKNOWN
     Route: 048

REACTIONS (1)
  - DIABETIC KETOACIDOSIS [None]
